FAERS Safety Report 20725987 (Version 2)
Quarter: 2022Q2

REPORT INFORMATION
  Report Type: Spontaneous
  Country: JP (occurrence: JP)
  Receive Date: 20220419
  Receipt Date: 20220527
  Transmission Date: 20220721
  Serious: Yes (Life-Threatening, Other)
  Sender: FDA-Public Use
  Company Number: JP-MYLANLABS-2022M1028079

PATIENT
  Age: 77 Year
  Sex: Female

DRUGS (3)
  1. CARBOPLATIN [Suspect]
     Active Substance: CARBOPLATIN
     Indication: Ovarian clear cell carcinoma
     Dosage: TRIWEEKLY CARBOPLATIN, AUC: 6 ON DAY 1
     Route: 065
  2. DOCETAXEL [Concomitant]
     Active Substance: DOCETAXEL
     Indication: Ovarian clear cell carcinoma
     Dosage: 70 MILLIGRAM/SQ. METER, TRIWEEKLY DOCETAXEL ON DAY 01
     Route: 065
  3. BEVACIZUMAB [Concomitant]
     Active Substance: BEVACIZUMAB
     Indication: Ovarian clear cell carcinoma
     Dosage: 15 MILLIGRAM/KILOGRAM, TRIWEEKLY BEVACIZUMAB ON DAY 1
     Route: 065

REACTIONS (2)
  - Hyponatraemia [Recovered/Resolved]
  - Inappropriate antidiuretic hormone secretion [Recovered/Resolved]
